FAERS Safety Report 20384490 (Version 1)
Quarter: 2022Q1

REPORT INFORMATION
  Report Type: Spontaneous
  Country: DE (occurrence: DE)
  Receive Date: 20220127
  Receipt Date: 20220127
  Transmission Date: 20220424
  Serious: Yes (Other)
  Sender: FDA-Public Use
  Company Number: None

PATIENT
  Age: 38 Year
  Sex: Female

DRUGS (1)
  1. LEVONORGESTREL [Suspect]
     Active Substance: LEVONORGESTREL
     Dosage: 14?G/DAY
     Route: 015
     Dates: start: 20210903, end: 20211210

REACTIONS (8)
  - Urogenital fistula [Recovering/Resolving]
  - Hydrometra [Recovering/Resolving]
  - Sensation of foreign body [Recovering/Resolving]
  - Menometrorrhagia [Recovering/Resolving]
  - Vaginal haemorrhage [Recovering/Resolving]
  - Heavy menstrual bleeding [Recovering/Resolving]
  - Uterine enlargement [Recovering/Resolving]
  - Pelvic pain [Recovering/Resolving]

NARRATIVE: CASE EVENT DATE: 20211017
